FAERS Safety Report 18335328 (Version 4)
Quarter: 2021Q2

REPORT INFORMATION
  Report Type: Spontaneous
  Country: JP (occurrence: JP)
  Receive Date: 20201001
  Receipt Date: 20210425
  Transmission Date: 20210717
  Serious: Yes (Other)
  Sender: FDA-Public Use
  Company Number: NVSJ2020JP009290

PATIENT
  Age: 82 Year
  Sex: Male
  Weight: 67 kg

DRUGS (6)
  1. BEOVU [Suspect]
     Active Substance: BROLUCIZUMAB-DBLL
     Dosage: 6 MG
     Route: 031
     Dates: start: 20200914, end: 20200914
  2. EYLEA [Suspect]
     Active Substance: AFLIBERCEPT
     Dosage: UNK
     Route: 031
     Dates: start: 20200706, end: 20200706
  3. BEOVU [Suspect]
     Active Substance: BROLUCIZUMAB-DBLL
     Indication: AGE-RELATED MACULAR DEGENERATION
     Dosage: 6 MG
     Route: 031
     Dates: start: 20200817, end: 20200817
  4. EYLEA [Suspect]
     Active Substance: AFLIBERCEPT
     Indication: PRODUCT USED FOR UNKNOWN INDICATION
     Dosage: UNK
     Route: 031
     Dates: start: 20141119
  5. EYLEA [Suspect]
     Active Substance: AFLIBERCEPT
     Dosage: UNK
     Route: 031
     Dates: start: 20200508
  6. EYLEA [Suspect]
     Active Substance: AFLIBERCEPT
     Dosage: UNK
     Route: 031
     Dates: start: 20200608

REACTIONS (7)
  - Vitreous opacities [Unknown]
  - Blindness transient [Recovered/Resolved]
  - Posterior capsule opacification [Unknown]
  - Concomitant disease aggravated [Unknown]
  - Uveitis [Not Recovered/Not Resolved]
  - Iritis [Not Recovered/Not Resolved]
  - Vitreal cells [Unknown]

NARRATIVE: CASE EVENT DATE: 20200915
